FAERS Safety Report 18150950 (Version 3)
Quarter: 2021Q3

REPORT INFORMATION
  Report Type: Spontaneous
  Country: GB (occurrence: GB)
  Receive Date: 20200814
  Receipt Date: 20210727
  Transmission Date: 20211014
  Serious: Yes (Hospitalization, Other)
  Sender: FDA-Public Use
  Company Number: GB-MACLEODS PHARMACEUTICALS US LTD-MAC2020027670

PATIENT

DRUGS (6)
  1. ASDA FRUIT FLAVOURED ANTACID TABLETS [Interacting]
     Active Substance: CALCIUM CARBONATE
     Indication: DYSPEPSIA
     Dosage: 9 DOSAGE FORM, QD, INGESTING UP TO NINE TABLETS OF CALCIUM CARBONATE (4,500 MG IN TOTAL) EVERY DAY F
     Route: 048
     Dates: start: 2017, end: 20190315
  2. SIMVASTATIN. [Concomitant]
     Active Substance: SIMVASTATIN
     Indication: PRODUCT USED FOR UNKNOWN INDICATION
     Dosage: UNK, EVERY
     Route: 065
  3. LOSARTAN. [Suspect]
     Active Substance: LOSARTAN
     Indication: HYPERTENSION
     Dosage: UNK, EVERY 1 DAY
     Route: 065
     Dates: start: 2014
  4. SIMVASTATIN. [Concomitant]
     Active Substance: SIMVASTATIN
     Dosage: UNK, EVERY
     Route: 065
  5. BUPRENORPHINE. [Concomitant]
     Active Substance: BUPRENORPHINE
     Indication: PRODUCT USED FOR UNKNOWN INDICATION
     Dosage: UNK, PATCH
     Route: 062
  6. PARACETAMOL [Concomitant]
     Active Substance: ACETAMINOPHEN
     Indication: PRODUCT USED FOR UNKNOWN INDICATION
     Dosage: UNK, EVERY
     Route: 065

REACTIONS (9)
  - Hypercalcaemia [Recovered/Resolved]
  - Drug interaction [Recovered/Resolved]
  - Vitamin D deficiency [Recovered/Resolved]
  - Intentional overdose [Recovered/Resolved]
  - Prescription drug used without a prescription [Recovered/Resolved]
  - Milk-alkali syndrome [Recovered/Resolved]
  - Condition aggravated [Recovered/Resolved]
  - Nephrolithiasis [Recovered/Resolved]
  - Renal impairment [Recovering/Resolving]

NARRATIVE: CASE EVENT DATE: 2019
